FAERS Safety Report 5858931-1 (Version None)
Quarter: 2008Q3

REPORT INFORMATION
  Report Type: 
  Country: None (occurrence: None)
  Receive Date: 20080825
  Receipt Date: 20080808
  Transmission Date: 20090109
  Serious: Yes (Other)
  Sender: FDA-Public Use
  Company Number: 8035866

PATIENT
  Age: 27 Year
  Sex: Female
  Weight: 70 kg

DRUGS (6)
  1. KEPPRA [Suspect]
     Indication: EPILEPSY
     Dosage: 1500 MG /D
  2. VITAMIN TAB [Concomitant]
  3. XANAX [Concomitant]
  4. TYLENOL (CAPLET) [Concomitant]
  5. THERAFLU [Concomitant]
  6. SLOW FE [Concomitant]

REACTIONS (5)
  - ANAEMIA [None]
  - CAESAREAN SECTION [None]
  - DRUG EXPOSURE BEFORE PREGNANCY [None]
  - PREMATURE LABOUR [None]
  - TRISOMY 21 [None]
